FAERS Safety Report 15435763 (Version 1)
Quarter: 2018Q3

REPORT INFORMATION
  Report Type: Spontaneous
  Country: GB (occurrence: GB)
  Receive Date: 20180927
  Receipt Date: 20180927
  Transmission Date: 20181010
  Serious: Yes (Disabling, Other)
  Sender: FDA-Public Use
  Company Number: GB-TEVA-2018-GB-958992

PATIENT
  Age: 68 Year
  Sex: Female
  Weight: 74.38 kg

DRUGS (13)
  1. PARACETAMOL [Concomitant]
     Active Substance: ACETAMINOPHEN
     Dosage: FOUR TIMES DAILY
  2. DOXAZOSIN [Concomitant]
     Active Substance: DOXAZOSIN\DOXAZOSIN MESYLATE
     Dosage: 2 MILLIGRAM DAILY;
  3. PENICILLIN [Concomitant]
     Active Substance: PENICILLIN
     Indication: BRONCHIECTASIS
     Route: 042
  4. OMEPRAZOLE. [Concomitant]
     Active Substance: OMEPRAZOLE
     Dosage: 10 MILLIGRAM DAILY;
  5. LOSARTAN. [Concomitant]
     Active Substance: LOSARTAN
     Dosage: 50 MILLIGRAM DAILY;
  6. SALBUTAMOL [Concomitant]
     Active Substance: ALBUTEROL
     Dosage: DRY POWDER ONE OR TWO PUFFS FOUR TIMES A DAY
  7. CARBOCISTEINE [Concomitant]
     Active Substance: CARBOCYSTEINE
     Dosage: 2250 MILLIGRAM DAILY;
  8. CIPROFLOXACIN HYDROCHLORIDE. [Suspect]
     Active Substance: CIPROFLOXACIN HYDROCHLORIDE
     Indication: LOWER RESPIRATORY TRACT INFECTION
     Dosage: 1500 MILLIGRAM DAILY;
     Route: 048
     Dates: start: 20180809, end: 20180819
  9. EVACAL D3 CHEWABLE [Concomitant]
     Dosage: 3000 MILLIGRAM DAILY;
  10. PREDNISOLONE. [Concomitant]
     Active Substance: PREDNISOLONE
  11. CODEINE [Concomitant]
     Active Substance: CODEINE
     Dosage: 1 OR 2 UP TO FOUR TIMES A DAY
  12. PIPERACILLIN AND TAZOBACTAM [Concomitant]
     Active Substance: PIPERACILLIN SODIUM\TAZOBACTAM SODIUM
     Indication: BRONCHIECTASIS
     Route: 042
  13. MOMETASONE [Concomitant]
     Active Substance: MOMETASONE
     Dosage: 50 MILLIGRAM DAILY; SPRAY IN EACH NOSTRIL
     Route: 045

REACTIONS (3)
  - Tenderness [Not Recovered/Not Resolved]
  - Pain [Not Recovered/Not Resolved]
  - Tendonitis [Not Recovered/Not Resolved]

NARRATIVE: CASE EVENT DATE: 20180812
